FAERS Safety Report 7570449-7 (Version None)
Quarter: 2011Q2

REPORT INFORMATION
  Report Type: 
  Country: None (occurrence: None)
  Receive Date: 20110624
  Receipt Date: 20110607
  Transmission Date: 20111010
  Serious: No
  Sender: FDA-Public Use
  Company Number: US-B.I. PHARMACEUTICALS,INC./RIDGEFIELD-2011-BP-14890BP

PATIENT
  Sex: Male

DRUGS (9)
  1. PRADAXA [Suspect]
     Indication: ATRIAL FIBRILLATION
  2. DANDELION [Concomitant]
     Indication: SUPPLEMENTATION THERAPY
     Route: 048
  3. PRADAXA [Suspect]
     Indication: THROMBOSIS
     Dosage: 300 MG
     Route: 048
     Dates: start: 20110602
  4. ENALAPRIL MALEATE [Concomitant]
     Indication: HYPERTENSION
     Route: 048
     Dates: start: 19920101
  5. VASOTEC [Concomitant]
     Indication: HYPERTENSION
     Dosage: 15 MG
     Route: 048
     Dates: start: 19970101
  6. TUMERIC [Concomitant]
     Indication: SUPPLEMENTATION THERAPY
     Route: 048
  7. PRADAXA [Suspect]
     Indication: THROMBOSIS PROPHYLAXIS
  8. MILK THISTLE [Concomitant]
     Indication: SUPPLEMENTATION THERAPY
     Route: 048
  9. COQ10 [Concomitant]
     Indication: SUPPLEMENTATION THERAPY
     Route: 048

REACTIONS (5)
  - RASH [None]
  - EPISTAXIS [None]
  - OCULAR HYPERAEMIA [None]
  - HAEMORRHOIDAL HAEMORRHAGE [None]
  - PRURITUS [None]
